FAERS Safety Report 4511087-X (Version None)
Quarter: 2004Q4

REPORT INFORMATION
  Report Type: 
  Country: None (occurrence: None)
  Receive Date: 20041015
  Receipt Date: 20040127
  Transmission Date: 20050328
  Serious: Yes (Other)
  Sender: FDA-Public Use
  Company Number: 2004005894

PATIENT
  Sex: Male

DRUGS (4)
  1. NEURONTIN [Suspect]
     Indication: ILL-DEFINED DISORDER
  2. VFEND [Suspect]
     Indication: ILL-DEFINED DISORDER
  3. LINEZOLID (LINEZOLID) [Concomitant]
  4. LANSOPRAZOLE [Concomitant]

REACTIONS (1)
  - DEAFNESS [None]
